FAERS Safety Report 7827461-X (Version None)
Quarter: 2011Q4

REPORT INFORMATION
  Report Type: 
  Country: None (occurrence: None)
  Receive Date: 20111020
  Receipt Date: 20111007
  Transmission Date: 20120403
  Serious: Yes (Hospitalization)
  Sender: FDA-Public Use
  Company Number: JP-PERRIGO-11JP008611

PATIENT
  Age: 26 Year
  Sex: Male

DRUGS (1)
  1. MESALAMINE [Suspect]
     Indication: COLITIS ULCERATIVE
     Dosage: UNK
     Route: 065

REACTIONS (6)
  - DYSPNOEA EXERTIONAL [None]
  - COUGH [None]
  - HYPERSENSITIVITY [None]
  - EOSINOPHILIC PNEUMONIA [None]
  - PYREXIA [None]
  - LUNG INFILTRATION [None]
